FAERS Safety Report 10172585 (Version 1)
Quarter: 2014Q2

REPORT INFORMATION
  Report Type: Spontaneous
  Country: US (occurrence: US)
  Receive Date: 20140515
  Receipt Date: 20140515
  Transmission Date: 20141212
  Serious: No
  Sender: FDA-Public Use
  Company Number: US-009507513-1405USA004990

PATIENT
  Sex: Male

DRUGS (1)
  1. AFRIN NO DRIP [Suspect]
     Indication: PRODUCT USED FOR UNKNOWN INDICATION
     Dosage: UNK
     Route: 045
     Dates: end: 201404

REACTIONS (4)
  - Tremor [Unknown]
  - Therapeutic response changed [Unknown]
  - Drug administration error [Unknown]
  - Off label use [Unknown]
